FAERS Safety Report 4461653-5 (Version None)
Quarter: 2004Q3

REPORT INFORMATION
  Report Type: 
  Country: None (occurrence: None)
  Receive Date: 20040924
  Receipt Date: 20040908
  Transmission Date: 20050211
  Serious: No
  Sender: FDA-Public Use
  Company Number: A01200404344

PATIENT
  Age: 71 Year
  Sex: Male

DRUGS (5)
  1. PLAVIX [Suspect]
     Indication: ARTERITIS
     Dosage: 75 MD OD, ORAL
     Route: 048
     Dates: start: 19991223
  2. ASPIRIN [Suspect]
     Indication: ARTERITIS
     Dosage: 75 MG QD, ORAL
     Route: 048
     Dates: start: 20030612
  3. MICARDIS 80   (TELMISARTAN) [Concomitant]
  4. LESCOL LP          (FLUVASTATIN) [Concomitant]
  5. AMARYL [Concomitant]

REACTIONS (2)
  - CEREBRAL CYST [None]
  - PHLEBITIS DEEP [None]
